FAERS Safety Report 11386963 (Version 1)
Quarter: 2015Q3

REPORT INFORMATION
  Report Type: Spontaneous
  Country: US (occurrence: None)
  Receive Date: 20150814
  Receipt Date: 20150814
  Transmission Date: 20151125
  Serious: Yes (Life-Threatening, Hospitalization)
  Sender: FDA-Public Use
  Company Number: None

PATIENT
  Age: 39 Year
  Sex: Female
  Weight: 84.9 kg

DRUGS (4)
  1. DILAUDID [Suspect]
     Active Substance: HYDROMORPHONE HYDROCHLORIDE
     Indication: PAIN
     Dosage: RECENT
     Route: 042
  2. PHENERGAN [Suspect]
     Active Substance: PROMETHAZINE HYDROCHLORIDE
     Route: 042
  3. MORPHINE [Suspect]
     Active Substance: MORPHINE
     Indication: PAIN
     Dosage: RECENT
     Route: 042
  4. ATIVAN [Suspect]
     Active Substance: LORAZEPAM
     Route: 042

REACTIONS (3)
  - Unresponsive to stimuli [None]
  - Pneumonia aspiration [None]
  - Vomiting [None]

NARRATIVE: CASE EVENT DATE: 20150216
